FAERS Safety Report 7573484-8 (Version None)
Quarter: 2011Q2

REPORT INFORMATION
  Report Type: 
  Country: None (occurrence: None)
  Receive Date: 20110627
  Receipt Date: 20110613
  Transmission Date: 20111010
  Serious: Yes (Other)
  Sender: FDA-Public Use
  Company Number: CO-JNJFOC-20110606831

PATIENT
  Sex: Male

DRUGS (3)
  1. REMICADE [Suspect]
     Indication: PRODUCT USED FOR UNKNOWN INDICATION
     Route: 042
     Dates: start: 20110609
  2. REMICADE [Suspect]
     Route: 042
     Dates: start: 20080101
  3. PREMEDICATION [Concomitant]

REACTIONS (11)
  - DYSPNOEA [None]
  - DIZZINESS [None]
  - DRY SKIN [None]
  - ERYTHEMA [None]
  - INAPPROPRIATE SCHEDULE OF DRUG ADMINISTRATION [None]
  - HYPERSENSITIVITY [None]
  - NAUSEA [None]
  - INFUSION RELATED REACTION [None]
  - CHEST PAIN [None]
  - BLOOD PRESSURE INCREASED [None]
  - DEPRESSION [None]
